FAERS Safety Report 7149428-X (Version None)
Quarter: 2010Q4

REPORT INFORMATION
  Report Type: 
  Country: None (occurrence: None)
  Receive Date: 20101209
  Receipt Date: 20100910
  Transmission Date: 20110411
  Serious: No
  Sender: FDA-Public Use
  Company Number: US-KINGPHARMUSA00001-K201001144

PATIENT
  Sex: Female
  Weight: 60.317 kg

DRUGS (10)
  1. EMBEDA [Suspect]
     Indication: PAIN
     Dosage: 300 MG, QD
     Route: 048
     Dates: start: 20100801, end: 20100909
  2. EMBEDA [Suspect]
     Dosage: 300 MG, BID
     Route: 048
     Dates: start: 20100910
  3. ZOVIA 1/35E-21 [Concomitant]
     Indication: HORMONE REPLACEMENT THERAPY
     Dosage: 1 DF, QD (3 WEEKS PER MONTH)
     Route: 048
  4. AMITRIPTYLINE [Concomitant]
     Indication: PAIN PROPHYLAXIS
     Dosage: 25 MG, QD
     Route: 048
  5. OXYCODONE HCL [Concomitant]
     Indication: BREAKTHROUGH PAIN
     Dosage: 15 MG, PRN
     Route: 048
     Dates: end: 20100801
  6. OXYCODONE HCL [Concomitant]
     Dosage: 15 MG, TID
     Route: 048
     Dates: start: 20100801
  7. SYNTHROID [Concomitant]
     Indication: HYPOTHYROIDISM
     Dosage: .075 UNK, QD
     Route: 048
  8. KLONOPIN [Concomitant]
     Indication: BREAKTHROUGH PAIN
     Dosage: 1 MG, PRN
     Route: 048
     Dates: end: 20100801
  9. KLONOPIN [Concomitant]
     Dosage: 1 MG, TID
     Route: 048
     Dates: start: 20100801
  10. NASAL PREPARATIONS [Concomitant]
     Indication: SINUS DISORDER

REACTIONS (11)
  - APHASIA [None]
  - COLD SWEAT [None]
  - CONFUSIONAL STATE [None]
  - DECREASED APPETITE [None]
  - DRUG WITHDRAWAL SYNDROME [None]
  - DYSPHEMIA [None]
  - FLIGHT OF IDEAS [None]
  - NAUSEA [None]
  - PALPITATIONS [None]
  - REPETITIVE SPEECH [None]
  - SPEECH DISORDER [None]
